FAERS Safety Report 6679637-5 (Version None)
Quarter: 2010Q2

REPORT INFORMATION
  Report Type: 
  Country: None (occurrence: None)
  Receive Date: 20100413
  Receipt Date: 20100412
  Transmission Date: 20101027
  Serious: Yes (Other)
  Sender: FDA-Public Use
  Company Number: A0814046A

PATIENT
  Sex: Female
  Weight: 73 kg

DRUGS (3)
  1. TYKERB [Suspect]
     Dosage: 1250MG PER DAY
     Route: 048
     Dates: start: 20091023, end: 20100131
  2. XELODA [Concomitant]
     Route: 065
     Dates: end: 20100201
  3. RAMIPRIL [Concomitant]
     Route: 065

REACTIONS (10)
  - ASPARTATE AMINOTRANSFERASE INCREASED [None]
  - BLOOD BILIRUBIN INCREASED [None]
  - BLOOD LACTATE DEHYDROGENASE INCREASED [None]
  - CONJUNCTIVITIS [None]
  - DIARRHOEA [None]
  - FATIGUE [None]
  - HEPATIC ENZYME INCREASED [None]
  - LIVER FUNCTION TEST ABNORMAL [None]
  - PALMAR-PLANTAR ERYTHRODYSAESTHESIA SYNDROME [None]
  - QUALITY OF LIFE DECREASED [None]
